FAERS Safety Report 7435809-3 (Version None)
Quarter: 2011Q2

REPORT INFORMATION
  Report Type: 
  Country: None (occurrence: None)
  Receive Date: 20110425
  Receipt Date: 20110421
  Transmission Date: 20111010
  Serious: Yes (Other)
  Sender: FDA-Public Use
  Company Number: US-PFIZER INC-2011087551

PATIENT
  Sex: Female
  Weight: 72.562 kg

DRUGS (1)
  1. CELEBREX [Suspect]
     Indication: ARTHRITIS
     Dosage: 200 MG, 2X/DAY
     Route: 048

REACTIONS (4)
  - FLUID RETENTION [None]
  - HYPERTENSION [None]
  - APPENDICITIS [None]
  - TYPE 2 DIABETES MELLITUS [None]
